FAERS Safety Report 11606957 (Version 1)
Quarter: 2015Q4

REPORT INFORMATION
  Report Type: Spontaneous
  Country: US (occurrence: US)
  Receive Date: 20151007
  Receipt Date: 20151007
  Transmission Date: 20160304
  Serious: No
  Sender: FDA-Public Use
  Company Number: US-HORIZON-VIM-0108-2015

PATIENT
  Age: 66 Year
  Sex: Female
  Weight: 68 kg

DRUGS (5)
  1. NEXIUM [Suspect]
     Active Substance: ESOMEPRAZOLE MAGNESIUM
     Indication: DYSPEPSIA
     Dosage: DAILY DOSE: 20 MG MILLGRAM(S) EVERY DAYS
     Route: 048
     Dates: start: 201105
  2. VIMOVO [Suspect]
     Active Substance: ESOMEPRAZOLE MAGNESIUM\NAPROXEN
     Indication: PAIN
     Dosage: 500/20 MG TWICE DAILY
     Route: 048
     Dates: start: 201011, end: 201105
  3. HYDROCODONE [Concomitant]
     Active Substance: HYDROCODONE
     Indication: PAIN
     Dosage: 7.5/500 MG TID
     Route: 048
  4. LORAZEPAM. [Concomitant]
     Active Substance: LORAZEPAM
     Indication: SLEEP DISORDER
     Dosage: DAILY DOSE: 1 MG MILLGRAM(S) EVERY DAYS
     Route: 048
  5. CEPHALEXIN. [Concomitant]
     Active Substance: CEPHALEXIN
     Indication: CELLULITIS

REACTIONS (28)
  - Peripheral swelling [Unknown]
  - Vomiting [Unknown]
  - Drug ineffective [Unknown]
  - Ulcer [Unknown]
  - Rash [Recovered/Resolved]
  - Cluster headache [Unknown]
  - Varicose vein [Unknown]
  - Nausea [Unknown]
  - Bone disorder [Unknown]
  - Sciatica [Unknown]
  - Joint swelling [Unknown]
  - Abdominal pain upper [Unknown]
  - Peripheral swelling [Not Recovered/Not Resolved]
  - Oedema peripheral [Unknown]
  - Monarthritis [Unknown]
  - Hypoaesthesia [Unknown]
  - Pruritus [Recovered/Resolved]
  - Gastrooesophageal reflux disease [Unknown]
  - Nerve injury [Unknown]
  - Dyspepsia [Unknown]
  - Drug hypersensitivity [Unknown]
  - Arthralgia [Unknown]
  - Drug tolerance decreased [Unknown]
  - Pain [Unknown]
  - Erythema [Unknown]
  - Drug dose omission [Recovered/Resolved]
  - Pain in extremity [Unknown]
  - Intentional product misuse [Unknown]

NARRATIVE: CASE EVENT DATE: 201311
